FAERS Safety Report 17567885 (Version 1)
Quarter: 2020Q1

REPORT INFORMATION
  Report Type: Spontaneous
  Country: US (occurrence: US)
  Receive Date: 20200320
  Receipt Date: 20200320
  Transmission Date: 20200409
  Serious: No
  Sender: FDA-Public Use
  Company Number: US-SUN PHARMACEUTICAL INDUSTRIES LTD-2019R1-221146

PATIENT
  Age: 13 Year
  Sex: Male
  Weight: 94.33 kg

DRUGS (2)
  1. TECHNETIUM TC99M MEBROFENIN [Suspect]
     Active Substance: TECHNETIUM TC-99M MEBROFENIN
     Indication: HEPATOBILIARY SCAN
     Dosage: 6 MCI
     Route: 042
     Dates: start: 20190321
  2. KINEVAC [Concomitant]
     Active Substance: SINCALIDE
     Indication: PRODUCT USED FOR UNKNOWN INDICATION
     Dosage: 1.8 MICROGRAM
     Route: 042
     Dates: start: 20190321

REACTIONS (1)
  - Rash [Recovered/Resolved]

NARRATIVE: CASE EVENT DATE: 20190321
